FAERS Safety Report 9995097 (Version 1)
Quarter: 2014Q1

REPORT INFORMATION
  Report Type: Spontaneous
  Country: GB (occurrence: GB)
  Receive Date: 20140311
  Receipt Date: 20140311
  Transmission Date: 20141002
  Serious: Yes (Hospitalization, Disabling)
  Sender: FDA-Public Use
  Company Number: GB-ELI_LILLY_AND_COMPANY-GB201402008942

PATIENT
  Age: 71 Year
  Sex: Female
  Weight: 63.95 kg

DRUGS (11)
  1. CYMBALTA [Suspect]
     Indication: NEURALGIA
     Dosage: 30 MG, EACH EVENING
     Route: 048
     Dates: start: 20140207, end: 20140212
  2. BENDROFLUMETHIAZIDE [Concomitant]
     Dosage: UNK
  3. CO-DYDRAMOL [Concomitant]
     Dosage: UNK
  4. DUROGESIC [Concomitant]
     Dosage: UNK
  5. FELODIPINE [Concomitant]
     Dosage: UNK
  6. IRBESARTAN [Concomitant]
     Dosage: UNK
  7. LEVOTHYROXINE [Concomitant]
     Dosage: UNK
  8. ORAMORPH [Concomitant]
     Dosage: UNK
  9. PANTOPRAZOLE [Concomitant]
     Dosage: UNK
  10. PREGABALIN [Concomitant]
     Dosage: UNK
  11. TRAZODONE [Concomitant]
     Dosage: UNK

REACTIONS (6)
  - Delirium [Recovering/Resolving]
  - Hyponatraemia [Recovering/Resolving]
  - Confusional state [Recovering/Resolving]
  - Muscle twitching [Recovering/Resolving]
  - Somnolence [Recovering/Resolving]
  - Off label use [Recovered/Resolved]
